FAERS Safety Report 5114929-2 (Version None)
Quarter: 2006Q3

REPORT INFORMATION
  Report Type: 
  Country: None (occurrence: None)
  Receive Date: 20060922
  Receipt Date: 20060918
  Transmission Date: 20061208
  Serious: Yes (Other)
  Sender: FDA-Public Use
  Company Number: TPA2006A01046

PATIENT
  Age: 57 Year
  Sex: Female
  Weight: 89.8122 kg

DRUGS (6)
  1. ACTOPLUS MET [Suspect]
     Indication: DIABETES MELLITUS NON-INSULIN-DEPENDENT
     Dosage: 15/500 MG, 1 QAM + 2 QPM, PER ORAL
     Route: 048
     Dates: start: 20060201, end: 20060601
  2. UNKNOWN ACE INHIBITOR (ACE INHIBITOR NOS) [Concomitant]
  3. UNKNOWN CALCIUM CHANNEL BLOCKER (CALCIUM CHANNEL BLOCKERS) [Concomitant]
  4. UNKNOWN DIURETICS (DIURETICS) [Concomitant]
  5. AVANDAMET (METFORMIN HYDROCHLORIDE, ROSIGLITAZONE MALEATE) [Concomitant]
  6. LIPITOR [Concomitant]

REACTIONS (3)
  - MOVEMENT DISORDER [None]
  - MUSCULAR WEAKNESS [None]
  - MYALGIA [None]
